FAERS Safety Report 9999215 (Version 2)
Quarter: 2014Q2

REPORT INFORMATION
  Report Type: Spontaneous
  Country: IT (occurrence: IT)
  Receive Date: 20140312
  Receipt Date: 20140418
  Transmission Date: 20141212
  Serious: Yes (Other)
  Sender: FDA-Public Use
  Company Number: IT-ROCHE-1363498

PATIENT
  Age: 43 Year
  Sex: Female

DRUGS (1)
  1. ROCEFIN [Suspect]
     Indication: RESPIRATORY TRACT INFECTION
     Route: 030
     Dates: start: 20140219, end: 20140219

REACTIONS (4)
  - Abdominal pain [Recovering/Resolving]
  - Chills [Recovering/Resolving]
  - Constipation [Recovering/Resolving]
  - Malaise [Unknown]
